FAERS Safety Report 23266508 (Version 1)
Quarter: 2023Q4

REPORT INFORMATION
  Report Type: Other
  Country: FR (occurrence: None)
  Receive Date: 20231206
  Receipt Date: 20231206
  Transmission Date: 20240109
  Serious: Yes (Other)
  Sender: FDA-Public Use
  Company Number: FR-ROCHE-3467844

PATIENT

DRUGS (1)
  1. TOCILIZUMAB [Suspect]
     Active Substance: TOCILIZUMAB
     Indication: Giant cell arteritis
     Route: 065

REACTIONS (8)
  - Cerebrovascular accident [Unknown]
  - Optic ischaemic neuropathy [Unknown]
  - Treatment failure [Unknown]
  - Diplopia [Unknown]
  - Ophthalmoplegia [Unknown]
  - Mesenteric arterial occlusion [Unknown]
  - Transient ischaemic attack [Unknown]
  - Inflammatory marker increased [Unknown]
